FAERS Safety Report 10237259 (Version 2)
Quarter: 2014Q2

REPORT INFORMATION
  Report Type: Spontaneous
  Country: JP (occurrence: JP)
  Receive Date: 20140613
  Receipt Date: 20140619
  Transmission Date: 20141212
  Serious: No
  Sender: FDA-Public Use
  Company Number: JP-B.I. PHARMACEUTICALS,INC./RIDGEFIELD-2014-BI-26082NB

PATIENT
  Age: 87 Year
  Sex: Male

DRUGS (7)
  1. SPIRIVA [Suspect]
     Indication: CHRONIC OBSTRUCTIVE PULMONARY DISEASE
     Dosage: 5 MCG
     Route: 055
     Dates: start: 20140530, end: 20140609
  2. TRANCOLON [Suspect]
     Indication: IRRITABLE BOWEL SYNDROME
     Dosage: 45 MG
     Route: 048
     Dates: start: 20140530, end: 20140609
  3. CHAMPIX [Suspect]
     Indication: EX-TOBACCO USER
     Dosage: 2 MG
     Route: 048
     Dates: start: 20140530, end: 20140609
  4. CHAMPIX [Suspect]
     Dosage: 1 MG
     Route: 048
  5. ALFAROL [Concomitant]
     Indication: PRODUCT USED FOR UNKNOWN INDICATION
     Dosage: 1 MCG
     Route: 048
  6. MIYA BM [Concomitant]
     Indication: CONSTIPATION
     Dosage: 120 MG
     Route: 048
     Dates: start: 20140530, end: 20140609
  7. MAGNESIUM OXIDE [Concomitant]
     Indication: CONSTIPATION
     Dosage: 1980 MG
     Route: 048
     Dates: start: 20140530, end: 20140609

REACTIONS (3)
  - Urinary retention [Recovered/Resolved]
  - Vomiting [Recovered/Resolved]
  - Nausea [Recovered/Resolved]
